FAERS Safety Report 16217946 (Version 3)
Quarter: 2019Q2

REPORT INFORMATION
  Report Type: Spontaneous
  Country: GR (occurrence: GR)
  Receive Date: 20190419
  Receipt Date: 20190606
  Transmission Date: 20190711
  Serious: Yes (Other)
  Sender: FDA-Public Use
  Company Number: GR-JNJFOC-20190427042

PATIENT
  Age: 52 Year
  Sex: Female
  Weight: 94 kg

DRUGS (4)
  1. METHOTREXATE. [Suspect]
     Active Substance: METHOTREXATE
     Indication: PSORIATIC ARTHROPATHY
     Route: 048
     Dates: start: 20140201
  2. SIMPONI [Suspect]
     Active Substance: GOLIMUMAB
     Indication: PSORIATIC ARTHROPATHY
     Route: 058
     Dates: start: 20150301, end: 20181102
  3. PRAVAFENIX [Concomitant]
     Active Substance: FENOFIBRATE\PRAVASTATIN
     Indication: DYSLIPIDAEMIA
     Dosage: 40 MG/ 160 MG
     Route: 065
     Dates: start: 20150201
  4. PIRAMIL PLUS [Concomitant]
     Indication: HYPERTENSION
     Dosage: 5MG/25MG
     Route: 065
     Dates: start: 20150201

REACTIONS (1)
  - Endometrial adenocarcinoma [Unknown]

NARRATIVE: CASE EVENT DATE: 20180119
